FAERS Safety Report 10532870 (Version 1)
Quarter: 2014Q4

REPORT INFORMATION
  Report Type: Spontaneous
  Country: US (occurrence: US)
  Receive Date: 20141022
  Receipt Date: 20141022
  Transmission Date: 20150529
  Serious: Yes (Other)
  Sender: FDA-Public Use
  Company Number: US-BEH-2014045615

PATIENT
  Sex: Male

DRUGS (1)
  1. MONONINE [Suspect]
     Active Substance: COAGULATION FACTOR IX HUMAN
     Indication: FACTOR IX DEFICIENCY
     Dosage: 990;6000 UNITS EVERY 12 TO 24 HOURS AS NEEDED
     Route: 042

REACTIONS (1)
  - Haemarthrosis [Unknown]
